FAERS Safety Report 8843830 (Version 4)
Quarter: 2013Q1

REPORT INFORMATION
  Report Type: Spontaneous
  Country: US (occurrence: US)
  Receive Date: 20121016
  Receipt Date: 20130118
  Transmission Date: 20140127
  Serious: Yes (Hospitalization, Other)
  Sender: FDA-Public Use
  Company Number: US-PFIZER INC-2012257121

PATIENT
  Age: 63 Year
  Sex: Female
  Weight: 61.22 kg

DRUGS (61)
  1. CHANTIX [Suspect]
     Indication: SMOKING CESSATION THERAPY
     Dosage: 0.5 MG, 1X/DAY
     Route: 048
     Dates: start: 2009, end: 2009
  2. CHANTIX [Suspect]
     Dosage: 0.5 MG,ONE 2X/DAY 3 DAYS
     Dates: start: 2009, end: 2009
  3. CHANTIX [Suspect]
     Dosage: 1 MG, 1X/DAY
     Dates: start: 2009, end: 2009
  4. ASA [Concomitant]
     Dosage: 81 MG, DAILY
     Dates: start: 20120417
  5. ASA [Concomitant]
     Dosage: 81 MG, DAILY
     Dates: start: 20120515
  6. ASA [Concomitant]
     Dosage: 81 MG, DAILY
     Dates: start: 20120612
  7. ASA [Concomitant]
     Dosage: 81 MG, DAILY
     Dates: start: 20121115
  8. SPIRIVA [Concomitant]
     Dosage: UNK, DAILY
     Dates: start: 20120417
  9. SPIRIVA [Concomitant]
     Dosage: UNK, DAILY
     Dates: start: 20120515
  10. SPIRIVA [Concomitant]
     Dosage: UNK, DAILY
     Dates: start: 20121115
  11. PREDNISONE [Concomitant]
     Dosage: 20 MG, DAILY
     Dates: start: 20120417
  12. PREDNISONE [Concomitant]
     Dosage: 20 MG, DAILY
     Dates: start: 20120515
  13. PREDNISONE [Concomitant]
     Dosage: 20 MG, DAILY
     Dates: start: 20121115
  14. PLAVIX [Concomitant]
     Dosage: 75 MG, DAILY
     Dates: start: 20120417
  15. PLAVIX [Concomitant]
     Dosage: 75 MG, DAILY
     Dates: start: 20120515
  16. PLAVIX [Concomitant]
     Dosage: 75 MG, DAILY
     Dates: start: 20121115
  17. GABAPENTIN [Concomitant]
     Dosage: 300 MG, 3X/DAY
     Dates: start: 20120417
  18. GABAPENTIN [Concomitant]
     Dosage: 300 MG, 3X/DAY
     Dates: start: 20120515
  19. GABAPENTIN [Concomitant]
     Dosage: 300 MG, 3X/DAY
     Dates: start: 20121115
  20. LISINOPRIL [Concomitant]
     Dosage: 40 MG, DAILY
     Dates: start: 20120417
  21. LISINOPRIL [Concomitant]
     Dosage: 40 MG, DAILY
     Dates: start: 20120515
  22. LISINOPRIL [Concomitant]
     Dosage: 40 MG, DAILY
     Dates: start: 20121115
  23. HYDROCHLOROTHIAZIDE [Concomitant]
     Dosage: 25 MG, DAILY
     Dates: start: 20120417
  24. HYDROCHLOROTHIAZIDE [Concomitant]
     Dosage: 25 MG, DAILY
     Dates: start: 20120515
  25. HYDROCHLOROTHIAZIDE [Concomitant]
     Dosage: 25 MG, DAILY
     Dates: start: 20121115
  26. ALBUTEROL [Concomitant]
     Dosage: UNK; 4X/DAY PRN
     Dates: start: 20120417
  27. ALBUTEROL [Concomitant]
     Dosage: UNK; 4X/DAY PRN
     Dates: start: 20120515
  28. ALBUTEROL [Concomitant]
     Dosage: UNK; 4X/DAY PRN
     Dates: start: 20121115
  29. METOPROLOL [Concomitant]
     Dosage: 100 MG, DAILY
     Dates: start: 20120417
  30. METOPROLOL [Concomitant]
     Dosage: 100 MG, DAILY
     Dates: start: 20120515
  31. METOPROLOL [Concomitant]
     Dosage: 100 MG, DAILY
     Dates: start: 20121115
  32. FOSAMAX [Concomitant]
     Dosage: 70 MG, Q WEEKLY
     Dates: start: 20120417
  33. FOSAMAX [Concomitant]
     Dosage: 70 MG, Q WEEKLY
     Dates: start: 20120515
  34. FOSAMAX [Concomitant]
     Dosage: 70 MG, Q WEEKLY
     Dates: start: 20121115
  35. PROVENTIL HFA [Concomitant]
     Dosage: UNK
     Dates: start: 20120417
  36. PROVENTIL HFA [Concomitant]
     Dosage: UNK
     Dates: start: 20120515
  37. PROVENTIL HFA [Concomitant]
     Dosage: UNK
     Dates: start: 20121115
  38. SYMBICORT [Concomitant]
     Dosage: 160 MG, 2X/DAY PRN
     Dates: start: 20120417
  39. SYMBICORT [Concomitant]
     Dosage: 160 MG, 2X/DAY PRN
     Dates: start: 20121115
  40. CALCIUM [Concomitant]
     Dosage: 1.25 G, DAILY
     Dates: start: 20120417
  41. CALCIUM [Concomitant]
     Dosage: 1.25 G, DAILY
     Dates: start: 20120515
  42. CALCIUM [Concomitant]
     Dosage: 1.25 G, DAILY
     Dates: start: 20121115
  43. MULTIVITAMINS [Concomitant]
     Dosage: UNK
     Dates: start: 20120417
  44. MULTIVITAMINS [Concomitant]
     Dosage: UNK
     Dates: start: 20120515
  45. MULTIVITAMINS [Concomitant]
     Dosage: UNK
     Dates: start: 20121115
  46. ISOSORBIDE MONONITRATE [Concomitant]
     Dosage: 60 MG, 2X/DAY
     Dates: start: 20120417
  47. ISOSORBIDE MONONITRATE [Concomitant]
     Dosage: 60 MG, 2X/DAY
     Dates: start: 20120515
  48. ISOSORBIDE MONONITRATE [Concomitant]
     Dosage: 60 MG, 2X/DAY
     Dates: start: 20121115
  49. HYDROCODONE [Concomitant]
     Dosage: 5 MG, 3X/DAY PRN
     Dates: start: 20121115
  50. ATORVASTATIN [Concomitant]
     Dosage: 40 MG, DAILY
     Dates: start: 20121115
  51. MOXIFLOXACIN [Concomitant]
     Dosage: UNK
     Dates: start: 20120417
  52. MOXIFLOXACIN [Concomitant]
     Dosage: UNK
     Dates: start: 20120515
  53. MOXIFLOXACIN [Concomitant]
     Dosage: UNK
     Dates: start: 20121115
  54. LIDOCAINE [Concomitant]
     Dosage: 5 %, UNK
     Dates: start: 20121115
  55. NICOTINE [Concomitant]
     Dosage: UNK, NIGHT OF PRN
     Dates: start: 20121115
  56. OMEPRAZOL [Concomitant]
     Dosage: 20 MG, DAILY
     Dates: start: 20121115
  57. TRAZODONE [Concomitant]
     Dosage: 180 MG, EVERY BEDTIME
     Dates: start: 20121115
  58. CLOPIDOGREL [Concomitant]
     Dosage: 75 MG, UNK
  59. ROSUVASTATIN [Concomitant]
     Dosage: 40 MG, UNK
  60. DALIRESP [Concomitant]
     Dosage: UNK
  61. OXYGEN [Concomitant]
     Dosage: AT 2.01 PM

REACTIONS (4)
  - Chronic obstructive pulmonary disease [Unknown]
  - Emphysema [Unknown]
  - Cardiac disorder [Unknown]
  - Pulmonary fibrosis [Unknown]
